FAERS Safety Report 9657505 (Version 1)
Quarter: 2013Q4

REPORT INFORMATION
  Report Type: Spontaneous
  Country: US (occurrence: US)
  Receive Date: 20131030
  Receipt Date: 20131030
  Transmission Date: 20140711
  Serious: Yes (Other)
  Sender: FDA-Public Use
  Company Number: US-NAPPMUNDI-USA-2011-0078739

PATIENT
  Sex: Male

DRUGS (5)
  1. OXYCONTIN TABLETS [Suspect]
     Indication: SUBSTANCE ABUSE
  2. OXYCONTIN TABLETS [Suspect]
     Indication: SUBSTANCE ABUSE
  3. XANAX [Suspect]
     Indication: SUBSTANCE ABUSE
  4. TALWIN /00052101/ [Suspect]
     Indication: SUBSTANCE ABUSE
  5. LSD [Suspect]
     Indication: SUBSTANCE ABUSE

REACTIONS (1)
  - Substance abuse [Unknown]
